FAERS Safety Report 6413217-1 (Version None)
Quarter: 2009Q4

REPORT INFORMATION
  Report Type: 
  Country: None (occurrence: None)
  Receive Date: 20091026
  Receipt Date: 20091020
  Transmission Date: 20100525
  Serious: Yes (Death, Other)
  Sender: FDA-Public Use
  Company Number: PHHY2008JP20133

PATIENT
  Sex: Female
  Weight: 36 kg

DRUGS (7)
  1. EXJADE [Suspect]
     Indication: MYELODYSPLASTIC SYNDROME
     Dosage: 375 MG, QD
     Route: 048
     Dates: start: 20080626, end: 20080709
  2. EXJADE [Suspect]
     Indication: APLASTIC ANAEMIA
     Dosage: 250 MG, QD
     Route: 048
     Dates: start: 20080710, end: 20080806
  3. EXJADE [Suspect]
     Indication: IRON OVERLOAD
  4. NEORAL [Suspect]
     Indication: MYELODYSPLASTIC SYNDROME
     Dosage: 170 MG/DAY
     Route: 048
     Dates: start: 20030101, end: 20080811
  5. NEUPOGEN [Concomitant]
     Indication: PANCYTOPENIA
  6. ANTI-THYMOCYTE GLOBULIN NOS [Concomitant]
     Indication: PANCYTOPENIA
  7. RED BLOOD CELLS [Concomitant]
     Dosage: 0NCE OR TWICE A MONTH

REACTIONS (20)
  - BRAIN HERNIATION [None]
  - BRAIN STEM SYNDROME [None]
  - CEREBELLAR INFARCTION [None]
  - CEREBRAL VENTRICLE DILATATION [None]
  - CHEST PAIN [None]
  - DEPRESSED LEVEL OF CONSCIOUSNESS [None]
  - DYSPNOEA [None]
  - EMBOLIC CEREBRAL INFARCTION [None]
  - HEADACHE [None]
  - LUNG INFILTRATION [None]
  - MONOPARESIS [None]
  - MUCORMYCOSIS [None]
  - NECK PAIN [None]
  - PANCYTOPENIA [None]
  - PULMONARY EMBOLISM [None]
  - PYREXIA [None]
  - RENAL DISORDER [None]
  - RESPIRATORY FAILURE [None]
  - SEPTIC EMBOLUS [None]
  - SPEECH DISORDER [None]
